FAERS Safety Report 16370464 (Version 1)
Quarter: 2019Q2

REPORT INFORMATION
  Report Type: Spontaneous
  Country: CN (occurrence: CN)
  Receive Date: 20190530
  Receipt Date: 20190530
  Transmission Date: 20190711
  Serious: Yes (Death, Hospitalization, Other)
  Sender: FDA-Public Use
  Company Number: CN-ACCORD-129675

PATIENT
  Age: 34 Year
  Sex: Male

DRUGS (8)
  1. METHOTREXATE. [Suspect]
     Active Substance: METHOTREXATE
     Indication: SCHWANNOMA
     Dates: start: 2017
  2. METHOTREXATE. [Suspect]
     Active Substance: METHOTREXATE
     Indication: SCHWANNOMA
     Dates: start: 2017
  3. GEMCITABINE/GEMCITABINE HYDROCHLORIDE [Suspect]
     Active Substance: GEMCITABINE\GEMCITABINE HYDROCHLORIDE
     Indication: SCHWANNOMA
     Dates: start: 2017
  4. DEXAMETHASONE. [Suspect]
     Active Substance: DEXAMETHASONE
     Indication: SCHWANNOMA
     Dates: start: 2017
  5. OXALIPLATIN. [Suspect]
     Active Substance: OXALIPLATIN
     Indication: ANGIOCENTRIC LYMPHOMA
     Dates: start: 2017
  6. ASPARAGINASE [Suspect]
     Active Substance: ASPARAGINASE
     Indication: SCHWANNOMA
     Dates: start: 2017
  7. OXALIPLATIN. [Suspect]
     Active Substance: OXALIPLATIN
     Indication: SCHWANNOMA
     Dates: start: 2017
  8. METHOTREXATE. [Suspect]
     Active Substance: METHOTREXATE
     Indication: MENINGIOMA
     Dates: start: 2017

REACTIONS (2)
  - Neutropenia [Fatal]
  - Infection [Fatal]

NARRATIVE: CASE EVENT DATE: 2017
